FAERS Safety Report 24282035 (Version 2)
Quarter: 2024Q3

REPORT INFORMATION
  Report Type: Spontaneous
  Country: CA (occurrence: CA)
  Receive Date: 20240904
  Receipt Date: 20240905
  Transmission Date: 20241017
  Serious: Yes (Other)
  Sender: PFIZER
  Company Number: CA-PFIZER INC-202400248486

PATIENT
  Age: 17 Day
  Sex: Male

DRUGS (4)
  1. MIDAZOLAM [Suspect]
     Active Substance: MIDAZOLAM
     Dosage: UNK
  2. FENTANYL [Suspect]
     Active Substance: FENTANYL\FENTANYL CITRATE
     Dosage: UNK
  3. FLUMAZENIL [Concomitant]
     Active Substance: FLUMAZENIL
     Dosage: UNK
  4. NARCAN [Concomitant]
     Active Substance: NALOXONE HYDROCHLORIDE
     Dosage: UNK
     Route: 042

REACTIONS (4)
  - Discoloured vomit [Unknown]
  - Gastrointestinal sounds abnormal [Unknown]
  - Oxygen saturation decreased [Unknown]
  - Sedation [Unknown]
